FAERS Safety Report 9073505 (Version 2)
Quarter: 2013Q3

REPORT INFORMATION
  Report Type: Spontaneous
  Country: US (occurrence: US)
  Receive Date: 20130216
  Receipt Date: 20130819
  Transmission Date: 20140515
  Serious: Yes (Hospitalization)
  Sender: FDA-Public Use
  Company Number: US-UCBSA-078227

PATIENT
  Age: 18 Year
  Sex: Male

DRUGS (1)
  1. CIMZIA [Suspect]
     Indication: CROHN^S DISEASE
     Dates: start: 20130123

REACTIONS (2)
  - Intestinal perforation [Not Recovered/Not Resolved]
  - Abscess [Not Recovered/Not Resolved]
